FAERS Safety Report 4667009-4 (Version None)
Quarter: 2005Q2

REPORT INFORMATION
  Report Type: 
  Country: None (occurrence: None)
  Receive Date: 20050520
  Receipt Date: 20040409
  Transmission Date: 20051028
  Serious: Yes (Other)
  Sender: FDA-Public Use
  Company Number: PHEH2004US04086

PATIENT
  Age: 51 Year
  Sex: Female

DRUGS (17)
  1. METHADONE HCL [Concomitant]
     Indication: PAIN
     Dosage: UNK, QD
  2. OXYCODONE HCL [Concomitant]
     Indication: PAIN
  3. SYNTHROID [Concomitant]
  4. VIOXX [Concomitant]
  5. ONDANSETRON [Concomitant]
     Indication: NAUSEA
     Dosage: 8 MG, BID
     Dates: start: 20031008
  6. DOXORUBICIN HCL [Concomitant]
     Dates: start: 19050505
  7. ZOMETA [Suspect]
     Indication: METASTASES TO BONE
     Dosage: 4 MG OVER 15 MINUTES
     Dates: start: 20030604, end: 20030910
  8. CAPECITABINE [Concomitant]
     Dosage: 500 MG X 6 TREATMENTS
     Dates: start: 20010308, end: 20010621
  9. EPOETIN ALFA [Concomitant]
     Dosage: 40,000 X 22 TREATMENTS
     Dates: start: 20010718, end: 20030108
  10. FULVESTRANT [Concomitant]
     Dosage: 250 MG X 16 TREATMENTS
     Dates: start: 20020612, end: 20030910
  11. TAXOL [Concomitant]
     Dosage: 350 MG OVER 3 HOURS
     Dates: start: 20010718, end: 20020515
  12. DEXAMETHASONE SODIUM PHOSPHATE [Concomitant]
     Dosage: 6-8 MG OVER 15 MINUTES
     Dates: start: 20011010, end: 20020515
  13. DIPHENHYDRAMINE HCL [Concomitant]
     Dosage: 50MG OVER 5 MINUTES
     Dates: start: 20010718, end: 20020515
  14. METHYLPREDNISOLONE [Concomitant]
     Dosage: 40-50 MG OVER 10 MINUTES
     Dates: start: 20010718, end: 20010919
  15. RANITIDINE HYDROCHLORIDE [Concomitant]
     Dosage: 50 MG OVER 20 MINUTES
     Dates: start: 20010718, end: 20020515
  16. CHLORHEXIDINE [Concomitant]
  17. AREDIA [Suspect]
     Indication: METASTASES TO BONE
     Dosage: UNK, UNK
     Dates: start: 20010116, end: 20030430

REACTIONS (2)
  - OSTEONECROSIS [None]
  - TOOTH EXTRACTION [None]
